FAERS Safety Report 21423312 (Version 2)
Quarter: 2022Q4

REPORT INFORMATION
  Report Type: Spontaneous
  Country: CA (occurrence: CA)
  Receive Date: 20221007
  Receipt Date: 20221101
  Transmission Date: 20230112
  Serious: Yes (Other)
  Sender: FDA-Public Use
  Company Number: CA-Indivior Limited-INDV-136118-2022

PATIENT

DRUGS (34)
  1. SUBLOCADE [Suspect]
     Active Substance: BUPRENORPHINE
     Indication: Drug dependence
     Dosage: 300 MILLIGRAM, QMO
     Route: 065
     Dates: start: 20200625
  2. SUBLOCADE [Suspect]
     Active Substance: BUPRENORPHINE
     Dosage: 300 MILLIGRAM, QMO
     Route: 065
     Dates: start: 20201117
  3. SUBLOCADE [Suspect]
     Active Substance: BUPRENORPHINE
     Dosage: 300 MILLIGRAM, QMO
     Route: 065
     Dates: start: 20210309
  4. SUBLOCADE [Suspect]
     Active Substance: BUPRENORPHINE
     Dosage: 300 MILLIGRAM, QMO
     Route: 065
     Dates: start: 20210406
  5. SUBLOCADE [Suspect]
     Active Substance: BUPRENORPHINE
     Dosage: 300 MILLIGRAM, QMO
     Route: 065
     Dates: start: 20210803
  6. SUBLOCADE [Suspect]
     Active Substance: BUPRENORPHINE
     Dosage: 300 MILLIGRAM, QMO
     Route: 065
     Dates: start: 20210928
  7. SUBLOCADE [Suspect]
     Active Substance: BUPRENORPHINE
     Dosage: 300 MILLIGRAM, QMO
     Route: 065
     Dates: start: 20211123
  8. SUBLOCADE [Suspect]
     Active Substance: BUPRENORPHINE
     Dosage: 300 MILLIGRAM, QMO
     Route: 065
     Dates: start: 20211221
  9. SUBLOCADE [Suspect]
     Active Substance: BUPRENORPHINE
     Dosage: 300 MILLIGRAM, QMO
     Route: 065
     Dates: start: 20220215
  10. SUBLOCADE [Suspect]
     Active Substance: BUPRENORPHINE
     Dosage: 300 MILLIGRAM, QMO
     Route: 065
     Dates: start: 20220413
  11. SUBLOCADE [Suspect]
     Active Substance: BUPRENORPHINE
     Dosage: 300 MILLIGRAM, QMO
     Route: 065
     Dates: start: 20220608
  12. SUBLOCADE [Suspect]
     Active Substance: BUPRENORPHINE
     Dosage: 300 MILLIGRAM, QMO
     Route: 065
     Dates: start: 20220706
  13. SUBLOCADE [Suspect]
     Active Substance: BUPRENORPHINE
     Dosage: 300 MILLIGRAM, QMO
     Route: 065
     Dates: start: 20220831
  14. SUBLOCADE [Suspect]
     Active Substance: BUPRENORPHINE
     Indication: Drug dependence
     Dosage: 100 MILLIGRAM, QMO
     Route: 065
     Dates: start: 20200825
  15. SUBLOCADE [Suspect]
     Active Substance: BUPRENORPHINE
     Dosage: 100 MILLIGRAM, QMO
     Route: 065
     Dates: start: 20200923
  16. VARENICLINE TARTRATE [Concomitant]
     Active Substance: VARENICLINE TARTRATE
     Indication: Product used for unknown indication
     Dosage: 0.5 MILLIGRAM
     Route: 065
  17. VARENICLINE TARTRATE [Concomitant]
     Active Substance: VARENICLINE TARTRATE
     Dosage: 1 MILLIGRAM
     Route: 065
  18. NICOTINE [Concomitant]
     Active Substance: NICOTINE
     Indication: Product used for unknown indication
     Dosage: UNK
  19. ALVESCO [Concomitant]
     Active Substance: CICLESONIDE
     Indication: Product used for unknown indication
     Dosage: 200 MICROGRAM/ACTUATION 2 INHALATIONS, BID FOR 28 DAYS
  20. ATROVENT HFA [Concomitant]
     Active Substance: IPRATROPIUM BROMIDE
     Indication: Product used for unknown indication
     Dosage: 20 MICROGRAM/ACTUATION 1-2 INHALATIONS, QID FOR 28 DAYS
  21. POTASSIUM CHLORIDE [Concomitant]
     Active Substance: POTASSIUM CHLORIDE
     Indication: Product used for unknown indication
     Dosage: 16 MILLIEQUIVALENT, TID
     Route: 065
  22. OLODATEROL HYDROCHLORIDE\TIOTROPIUM BROMIDE MONOHYDRATE [Concomitant]
     Active Substance: OLODATEROL HYDROCHLORIDE\TIOTROPIUM BROMIDE MONOHYDRATE
     Indication: Product used for unknown indication
     Dosage: 2.5-2.5 MCG/ACTUATION 2 INHALATIONS, QD FOR 30 DAYS
  23. VENTOLIN HFA [Concomitant]
     Active Substance: ALBUTEROL SULFATE
     Indication: Product used for unknown indication
     Dosage: 100 MICROGRAM /INH AEROSOL 2 INHALATIONS , QID OR PRN FOR 28 DAYS
  24. SPIRONOLACTONE [Concomitant]
     Active Substance: SPIRONOLACTONE
     Indication: Product used for unknown indication
     Dosage: 25 MILLIGRAM, QD
     Route: 065
  25. PANTOPRAZOLE SODIUM [Concomitant]
     Active Substance: PANTOPRAZOLE SODIUM
     Indication: Product used for unknown indication
     Dosage: 40 MILLIGRAM, QD FOR 14 DAYS
     Route: 065
  26. XARELTO [Concomitant]
     Active Substance: RIVAROXABAN
     Indication: Deep vein thrombosis
     Dosage: 20 MILLIGRAM, QD FOR 14 DAYS
     Route: 065
  27. XARELTO [Concomitant]
     Active Substance: RIVAROXABAN
     Dosage: RESTARTED RIVAROXABAN
     Route: 065
  28. RISPERIDONE [Concomitant]
     Active Substance: RISPERIDONE
     Indication: Product used for unknown indication
     Dosage: 1 MILLIGRAM
     Route: 065
  29. DOCUSATE SODIUM [Concomitant]
     Active Substance: DOCUSATE SODIUM
     Indication: Product used for unknown indication
     Dosage: 2 MILLIGRAM, BID FOR 14 DAYS
     Route: 065
  30. CIPRALEX [Concomitant]
     Active Substance: ESCITALOPRAM OXALATE
     Indication: Product used for unknown indication
     Dosage: 15 MILLIGRAM (1.5 TABLETS), QD FOR 14 DAYS
     Route: 065
  31. ZOPICLONE [Concomitant]
     Active Substance: ZOPICLONE
     Indication: Product used for unknown indication
     Dosage: 7.5 MILLIGRAM, EVERY DAY AT BEDTIME FOR 14 DAYS
     Route: 065
  32. LASIX [Concomitant]
     Active Substance: FUROSEMIDE
     Indication: Product used for unknown indication
     Dosage: UNK
     Route: 065
  33. RIVAROXABAN [Concomitant]
     Active Substance: RIVAROXABAN
     Indication: Deep vein thrombosis
     Dosage: UNK
     Route: 065
  34. RIVAROXABAN [Concomitant]
     Active Substance: RIVAROXABAN
     Dosage: UNK
     Route: 065
     Dates: start: 202106

REACTIONS (14)
  - Renal impairment [Not Recovered/Not Resolved]
  - Thrombocytopenia [Not Recovered/Not Resolved]
  - Nephrolithiasis [Not Recovered/Not Resolved]
  - Pulmonary embolism [Unknown]
  - Peripheral vascular disorder [Not Recovered/Not Resolved]
  - Anaemia [Not Recovered/Not Resolved]
  - Urinary incontinence [Not Recovered/Not Resolved]
  - Gastrooesophageal reflux disease [Not Recovered/Not Resolved]
  - Galactorrhoea [Not Recovered/Not Resolved]
  - Chronic obstructive pulmonary disease [Not Recovered/Not Resolved]
  - Asthma [Not Recovered/Not Resolved]
  - Bipolar disorder [Not Recovered/Not Resolved]
  - Hepatic function abnormal [Not Recovered/Not Resolved]
  - Injection site induration [Not Recovered/Not Resolved]

NARRATIVE: CASE EVENT DATE: 20210601
